FAERS Safety Report 9505921 (Version 1)
Quarter: 2013Q1

REPORT INFORMATION
  Report Type: Spontaneous
  Country: US (occurrence: None)
  Receive Date: 20130213
  Receipt Date: 20130213
  Transmission Date: 20140127
  Serious: No
  Sender: FDA-Public Use
  Company Number: 2012-004437

PATIENT
  Age: 49 Year
  Sex: Female

DRUGS (1)
  1. LO LOESTRIN FE [Suspect]
     Indication: POLYMENORRHOEA
     Dosage: ONCE DAILY
     Route: 048
     Dates: start: 20120305, end: 20121208

REACTIONS (2)
  - Pulmonary embolism [None]
  - Dyspnoea [None]
